FAERS Safety Report 8345158-7 (Version None)
Quarter: 2012Q2

REPORT INFORMATION
  Report Type: 
  Country: None (occurrence: None)
  Receive Date: 20120508
  Receipt Date: 20120429
  Transmission Date: 20120825
  Serious: Yes (Hospitalization, Other)
  Sender: FDA-Public Use
  Company Number: PHHY2012DE037659

PATIENT
  Weight: 94 kg

DRUGS (20)
  1. CARMEN ACE [Suspect]
     Indication: HYPERTENSION
     Dosage: 1 DF/DAY
     Route: 048
     Dates: start: 20081124
  2. THIENOPYRIDINE [Suspect]
  3. BETA BLOCKING AGENTS [Concomitant]
  4. PLATELET AGGREGATION INHIBITORS [Concomitant]
  5. METOPROLOL TARTRATE [Suspect]
     Indication: HYPERTENSION
     Dosage: 190 MG/DAY
     Route: 048
     Dates: start: 20110317
  6. BERLINSULIN [Suspect]
     Indication: DIABETES MELLITUS
     Dosage: 26 IU/DAY
     Route: 058
     Dates: start: 20070115
  7. METFORMIN HCL [Suspect]
     Indication: DIABETES MELLITUS
     Dosage: 2000 MG/DAY
     Route: 048
     Dates: start: 20070827
  8. INHIBITORS OF NSAID GROUP [Concomitant]
  9. RASILEZ [Suspect]
     Dosage: (DOSE DECREASED)
     Dates: end: 20120201
  10. TORSEMIDE [Suspect]
     Indication: HYPERTENSION
     Dosage: 20 MG/DAY
     Route: 048
     Dates: start: 20110411
  11. DOXAZOSIN MESYLATE [Suspect]
     Indication: HYPERTENSION
     Dosage: 8 MG/DAY
     Route: 048
     Dates: start: 20110317
  12. PENTAERYTHRITOL TETRANITRATE [Suspect]
     Indication: ANGINA PECTORIS
     Dosage: 160 MG,/SAY
     Route: 048
     Dates: start: 20110317, end: 20110616
  13. DIURETICS [Concomitant]
  14. ACE INHIBITORS [Concomitant]
     Dates: start: 20120412
  15. CALCIUM CHANNEL BLOCKERS [Concomitant]
     Dates: start: 20120412
  16. RASILEZ [Suspect]
     Indication: HYPERTENSION
     Dosage: 150 MG/DAY
     Route: 048
     Dates: start: 20081124, end: 20120201
  17. BERLINSULIN BASAL [Suspect]
     Indication: DIABETES MELLITUS
     Dosage: 16 IU/DAY
     Route: 058
     Dates: start: 20090615
  18. ACE INHIBITORS [Concomitant]
  19. VASODILATORS USED IN CARDIAC DISEASES [Concomitant]
     Dates: end: 20110617
  20. HMG COA REDUCTASE INHIBITORS [Concomitant]

REACTIONS (4)
  - DYSPNOEA [None]
  - CORONARY ARTERY DISEASE [None]
  - BLOOD PRESSURE SYSTOLIC INCREASED [None]
  - AORTIC STENOSIS [None]
